FAERS Safety Report 7118354-4 (Version None)
Quarter: 2010Q4

REPORT INFORMATION
  Report Type: 
  Country: None (occurrence: None)
  Receive Date: 20101123
  Receipt Date: 20101119
  Transmission Date: 20110411
  Serious: Yes (Life-Threatening)
  Sender: FDA-Public Use
  Company Number: US-ASTRAZENECA-2010SE55202

PATIENT
  Age: 83 Year
  Sex: Female
  Weight: 70 kg

DRUGS (8)
  1. BUPIVACAINE HCL [Suspect]
     Indication: LOCAL ANAESTHESIA
     Dosage: WITH EPINEPHRINE 15 ML
     Route: 053
  2. BUPIVACAINE HCL [Suspect]
     Dosage: WITH EPINEPHRINE 15 ML
     Route: 053
  3. ROPIVACAINE [Suspect]
     Indication: LOCAL ANAESTHESIA
     Route: 053
  4. ROPIVACAINE [Suspect]
     Route: 053
  5. VITAMINS [Concomitant]
  6. ANTI-INFLAMMATORY MEDICATION [Concomitant]
  7. VERSED [Concomitant]
     Indication: SEDATION
  8. FENTANYL [Concomitant]
     Indication: SEDATION
     Route: 042

REACTIONS (8)
  - ATRIOVENTRICULAR BLOCK COMPLETE [None]
  - ATRIOVENTRICULAR BLOCK FIRST DEGREE [None]
  - BRADYCARDIA [None]
  - CONVULSION [None]
  - HYPOTENSION [None]
  - UNRESPONSIVE TO STIMULI [None]
  - VENTRICULAR EXTRASYSTOLES [None]
  - VENTRICULAR TACHYCARDIA [None]
